FAERS Safety Report 11693536 (Version 6)
Quarter: 2016Q1

REPORT INFORMATION
  Report Type: Report from Study
  Country: BR (occurrence: BR)
  Receive Date: 20151103
  Receipt Date: 20160314
  Transmission Date: 20160525
  Serious: Yes (Death, Hospitalization, Other)
  Sender: FDA-Public Use
  Company Number: PHHY2015BR109770

PATIENT
  Age: 57 Year
  Sex: Female
  Weight: 52 kg

DRUGS (6)
  1. AFINITOR [Suspect]
     Active Substance: EVEROLIMUS
     Dosage: 5 MG, UNK
     Route: 048
     Dates: start: 20150616
  2. AFINITOR [Suspect]
     Active Substance: EVEROLIMUS
     Indication: BREAST CANCER
     Dosage: UNK
     Route: 048
     Dates: start: 2014
  3. AFINITOR [Suspect]
     Active Substance: EVEROLIMUS
     Dosage: 10 MG, UNK
     Route: 048
  4. AROMASIN [Concomitant]
     Active Substance: EXEMESTANE
     Indication: BREAST CANCER
     Dosage: UNK UNK, QD
     Route: 065
  5. AFINITOR [Suspect]
     Active Substance: EVEROLIMUS
     Dosage: 5 MG, UNK
     Route: 048
  6. AFINITOR [Suspect]
     Active Substance: EVEROLIMUS
     Dosage: 10 MG, QD
     Route: 048

REACTIONS (25)
  - Malignant neoplasm progression [Fatal]
  - Breast mass [Unknown]
  - Asthenia [Recovering/Resolving]
  - Metastases to liver [Fatal]
  - Loss of consciousness [Unknown]
  - Mastitis [Unknown]
  - Dyspnoea [Unknown]
  - Weight decreased [Unknown]
  - Nausea [Unknown]
  - Metastases to lung [Fatal]
  - Respiratory failure [Fatal]
  - Pleural effusion [Unknown]
  - Abasia [Recovering/Resolving]
  - Incorrect dose administered [Unknown]
  - Fall [Unknown]
  - Dyspepsia [Unknown]
  - Malaise [Unknown]
  - Terminal state [Unknown]
  - Back pain [Unknown]
  - Wound [Unknown]
  - Vomiting [Unknown]
  - Irritability [Unknown]
  - Drug dispensing error [Unknown]
  - Feeding disorder [Unknown]
  - Concomitant disease aggravated [Unknown]

NARRATIVE: CASE EVENT DATE: 201511
